FAERS Safety Report 4368315-3 (Version None)
Quarter: 2004Q2

REPORT INFORMATION
  Report Type: 
  Country: None (occurrence: None)
  Receive Date: 20040527
  Receipt Date: 20040514
  Transmission Date: 20050107
  Serious: Yes (Hospitalization)
  Sender: FDA-Public Use
  Company Number: HQWYE889914MAY04

PATIENT
  Age: 52 Year
  Sex: Female

DRUGS (1)
  1. IBUPROFEN AND PSEUDOEPHEDRINE HCL [Suspect]
     Indication: RHINITIS
     Route: 048
     Dates: start: 20040113, end: 20040116

REACTIONS (3)
  - ATAXIA [None]
  - EOSINOPHILIA [None]
  - VASCULITIS [None]
